FAERS Safety Report 5876794-5 (Version None)
Quarter: 2008Q3

REPORT INFORMATION
  Report Type: 
  Country: None (occurrence: None)
  Receive Date: 20080910
  Receipt Date: 20080905
  Transmission Date: 20090109
  Serious: Yes (Death)
  Sender: FDA-Public Use
  Company Number: FR-WYE-G01810208

PATIENT
  Sex: Female
  Weight: 73 kg

DRUGS (1)
  1. TORISEL [Suspect]
     Indication: RENAL CANCER METASTATIC
     Dosage: 25 MG PER CYCLE
     Route: 042
     Dates: start: 20080415

REACTIONS (2)
  - DISEASE PROGRESSION [None]
  - MYALGIA [None]
